FAERS Safety Report 4751257-9 (Version None)
Quarter: 2005Q3

REPORT INFORMATION
  Report Type: 
  Country: None (occurrence: None)
  Receive Date: 20050822
  Receipt Date: 20050810
  Transmission Date: 20060218
  Serious: Yes (Hospitalization, Other)
  Sender: FDA-Public Use
  Company Number: 2005113595

PATIENT
  Age: 51 Year
  Sex: Male
  Weight: 84.8226 kg

DRUGS (6)
  1. ACCUPRIL [Suspect]
     Indication: HYPERTENSION
     Dosage: 80 MG (40 MG, 2 IN 1 D), ORAL
     Route: 048
     Dates: start: 20000701
  2. CADUET [Suspect]
     Indication: BLOOD CHOLESTEROL INCREASED
     Dosage: ORAL
     Route: 048
     Dates: start: 20050601
  3. LASIX [Concomitant]
  4. ISOSORBIDE (ISOSORBIDE) [Concomitant]
  5. ATENOLOL [Concomitant]
  6. ECOTRIN (ACETYLSALICYLIC ACID) [Concomitant]

REACTIONS (6)
  - BLOOD CHOLESTEROL INCREASED [None]
  - BLOOD TRIGLYCERIDES INCREASED [None]
  - CHEST PAIN [None]
  - CORONARY ARTERY OCCLUSION [None]
  - PERICARDIAL EFFUSION [None]
  - PULMONARY OEDEMA [None]
